FAERS Safety Report 4371736-6 (Version None)
Quarter: 2004Q2

REPORT INFORMATION
  Report Type: 
  Country: None (occurrence: None)
  Receive Date: 20040602
  Receipt Date: 20040602
  Transmission Date: 20050107
  Serious: Yes (Other)
  Sender: FDA-Public Use
  Company Number: None

PATIENT
  Age: 73 Year
  Sex: Male
  Weight: 67.6 kg

DRUGS (1)
  1. OMNIPAQUE 240 [Suspect]

REACTIONS (2)
  - GENERALISED ERYTHEMA [None]
  - RESPIRATORY ARREST [None]
